FAERS Safety Report 13611090 (Version 6)
Quarter: 2017Q3

REPORT INFORMATION
  Report Type: Report from Study
  Country: US (occurrence: US)
  Receive Date: 20170605
  Receipt Date: 20170802
  Transmission Date: 20171127
  Serious: No
  Sender: FDA-Public Use
  Company Number: PHEH2017US016819

PATIENT
  Sex: Female
  Weight: 113.38 kg

DRUGS (5)
  1. GILENYA [Suspect]
     Active Substance: FINGOLIMOD HYDROCHLORIDE
     Dosage: 0.5 MG, QOD
     Route: 048
  2. GILENYA [Suspect]
     Active Substance: FINGOLIMOD HYDROCHLORIDE
     Dosage: 0.5 MG, QW
     Route: 048
  3. GILENYA [Suspect]
     Active Substance: FINGOLIMOD HYDROCHLORIDE
     Dosage: 0.5 MG, QW
     Route: 048
  4. GILENYA [Suspect]
     Active Substance: FINGOLIMOD HYDROCHLORIDE
     Indication: MULTIPLE SCLEROSIS
     Dosage: 0.5 MG, QD
     Route: 048
     Dates: start: 20170627
  5. GILENYA [Suspect]
     Active Substance: FINGOLIMOD HYDROCHLORIDE
     Dosage: 0.5 MG, QD
     Route: 048
     Dates: start: 20170627

REACTIONS (12)
  - Respiratory disorder [Unknown]
  - Dizziness [Unknown]
  - Headache [Unknown]
  - Prescribed underdose [Not Recovered/Not Resolved]
  - Lymphocyte count increased [Unknown]
  - Feeling abnormal [Unknown]
  - Confusional state [Unknown]
  - Coordination abnormal [Unknown]
  - Back pain [Unknown]
  - Fatigue [Unknown]
  - Balance disorder [Unknown]
  - Viral infection [Unknown]
